FAERS Safety Report 15457951 (Version 11)
Quarter: 2019Q1

REPORT INFORMATION
  Report Type: Spontaneous
  Country: ES (occurrence: ES)
  Receive Date: 20181003
  Receipt Date: 20190220
  Transmission Date: 20190417
  Serious: Yes (Other)
  Sender: FDA-Public Use
  Company Number: ES-AMGEN-ESPSP2018136739

PATIENT
  Age: 23 Year
  Sex: Male

DRUGS (14)
  1. SIMPONI [Suspect]
     Active Substance: GOLIMUMAB
     Indication: PSORIATIC ARTHROPATHY
     Dosage: 50 MG, MONTHLY
     Route: 058
     Dates: start: 20121218, end: 20130106
  2. ACOXXEL [Suspect]
     Active Substance: ETORICOXIB
     Dosage: 270 MG, WEEKLY (90 MG, THREE TIMES PER WEEK)
     Route: 048
     Dates: start: 20141010
  3. DACORTIN [Suspect]
     Active Substance: PREDNISONE
     Indication: PSORIATIC ARTHROPATHY
     Dosage: 10 MG, ONCE A DAY
     Route: 065
     Dates: start: 20121218
  4. OMEPRAZOLE. [Concomitant]
     Active Substance: OMEPRAZOLE
     Dosage: UNK
  5. ACOXXEL [Suspect]
     Active Substance: ETORICOXIB
     Dosage: 90 MG, ALTERNATE DAY (EVERY 48 HOURS)
     Route: 048
     Dates: start: 201312, end: 20140227
  6. ARCOXIA [Suspect]
     Active Substance: ETORICOXIB
     Dosage: 90 MG, ALTERNATE DAY(EVERY 48 HOURS)
     Route: 048
     Dates: start: 201312, end: 20141010
  7. ENBREL [Suspect]
     Active Substance: ETANERCEPT
     Dosage: UNK
     Route: 065
     Dates: start: 201212
  8. ARCOXIA [Suspect]
     Active Substance: ETORICOXIB
     Indication: PSORIATIC ARTHROPATHY
     Dosage: 90 MG, ONCE A DAY
     Route: 065
     Dates: end: 201307
  9. ARCOXIA [Suspect]
     Active Substance: ETORICOXIB
     Dosage: 270 MG, WEEKLY (90 MG, THREE TIMES PER WEEK)
     Route: 048
     Dates: start: 20141010
  10. ACOXXEL [Suspect]
     Active Substance: ETORICOXIB
     Indication: PSORIATIC ARTHROPATHY
     Dosage: 90 MG, 1X/DAY
     Route: 048
     Dates: start: 20121218, end: 201307
  11. ACOXXEL [Suspect]
     Active Substance: ETORICOXIB
     Dosage: 90 MG, ALTERNATE DAY(EVERY 48 HOURS)
     Route: 048
     Dates: start: 201312, end: 20141010
  12. OMEPRAZOLE. [Concomitant]
     Active Substance: OMEPRAZOLE
     Dosage: UNK
  13. SIMPONI [Suspect]
     Active Substance: GOLIMUMAB
     Dosage: 50 MG, MONTHLY
     Route: 065
     Dates: start: 2013
  14. ENBREL [Suspect]
     Active Substance: ETANERCEPT
     Indication: PSORIATIC ARTHROPATHY
     Dosage: UNK
     Route: 065
     Dates: end: 201212

REACTIONS (22)
  - Bone erosion [Recovering/Resolving]
  - Condition aggravated [Recovered/Resolved]
  - Psoriasis [Recovered/Resolved]
  - Joint dislocation [Unknown]
  - Prerenal failure [Recovered/Resolved]
  - Sacroiliitis [Recovered/Resolved]
  - Off label use [Unknown]
  - Arthropathy [Recovered/Resolved]
  - Asthenia [Recovered/Resolved]
  - Inappropriate schedule of product administration [Unknown]
  - Drug ineffective for unapproved indication [Recovered/Resolved]
  - Metabolic syndrome [Unknown]
  - Myofascial pain syndrome [Recovered/Resolved]
  - Neck pain [Unknown]
  - Arthralgia [Unknown]
  - Aspartate aminotransferase increased [Unknown]
  - Plantar fasciitis [Unknown]
  - Anxiety [Unknown]
  - Gastroenteritis [Recovered/Resolved]
  - Spinal disorder [Unknown]
  - Tenosynovitis [Recovered/Resolved]
  - Gastroenteritis bacterial [Recovered/Resolved]

NARRATIVE: CASE EVENT DATE: 2012
